FAERS Safety Report 12609091 (Version 1)
Quarter: 2016Q3

REPORT INFORMATION
  Report Type: Spontaneous
  Country: US (occurrence: US)
  Receive Date: 20160731
  Receipt Date: 20160731
  Transmission Date: 20161109
  Serious: No
  Sender: FDA-Public Use
  Company Number: US-ASTRAZENECA-2016SE71052

PATIENT
  Age: 995 Month
  Sex: Female
  Weight: 77.1 kg

DRUGS (4)
  1. UNKNOWN [Concomitant]
     Active Substance: UNSPECIFIED INGREDIENT
     Indication: ANTIDEPRESSANT THERAPY
  2. BYETTA [Suspect]
     Active Substance: EXENATIDE
     Indication: TYPE 2 DIABETES MELLITUS
     Route: 058
  3. UNKNOWN [Concomitant]
     Active Substance: UNSPECIFIED INGREDIENT
     Indication: HYPERTENSION
  4. LEVOTHYROXIDE [Concomitant]
     Indication: THYROID DISORDER

REACTIONS (4)
  - Body height decreased [Unknown]
  - Incorrect dose administered by device [Unknown]
  - Glycosylated haemoglobin increased [Unknown]
  - Product quality issue [Unknown]

NARRATIVE: CASE EVENT DATE: 201604
